FAERS Safety Report 16154740 (Version 3)
Quarter: 2020Q3

REPORT INFORMATION
  Report Type: Not Available
  Country: US (occurrence: US)
  Receive Date: 20190403
  Receipt Date: 20200812
  Transmission Date: 20201102
  Serious: No
  Sender: FDA-Public Use
  Company Number: US-NEUROCRINE BIOSCIENCES INC.-2019NBI00770

PATIENT
  Age: 67 Year
  Sex: Female

DRUGS (11)
  1. HYDROCHLOROTHIAZIDE;LISINOPRIL [Concomitant]
     Active Substance: HYDROCHLOROTHIAZIDE\LISINOPRIL
     Dosage: 12.5 MG?10 MG
     Route: 048
  2. ESCITALOPRAM [Concomitant]
     Active Substance: ESCITALOPRAM OXALATE
     Indication: DEPRESSION
     Dosage: 1 1/2
     Route: 048
  3. INGREZZA [Suspect]
     Active Substance: VALBENAZINE
     Indication: TARDIVE DYSKINESIA
     Route: 048
     Dates: start: 20180711, end: 20180718
  4. INGREZZA [Suspect]
     Active Substance: VALBENAZINE
     Route: 048
     Dates: start: 20180719, end: 20200617
  5. SUMATRIPTAN. [Concomitant]
     Active Substance: SUMATRIPTAN
     Dosage: 20 MG/INH
  6. ASPERCREME NOS [Concomitant]
     Active Substance: MENTHOL\TROLAMINE SALICYLATE
     Dosage: ASPERCRERNE
     Route: 061
  7. SYNTHROID [Concomitant]
     Active Substance: LEVOTHYROXINE SODIUM
     Indication: HYPOTHYROIDISM
     Route: 048
  8. ACETAMINOPHEN;HYDROCODONE [Concomitant]
     Active Substance: ACETAMINOPHEN\HYDROCODONE
     Indication: PAIN
     Dosage: 325 MG?5 MG
     Route: 048
  9. METOPROLOL TARTRATE. [Concomitant]
     Active Substance: METOPROLOL TARTRATE
     Route: 048
  10. MORPHINE [Concomitant]
     Active Substance: MORPHINE
     Indication: PAIN
     Dosage: QHS
     Route: 048
  11. GABAPENTIN. [Concomitant]
     Active Substance: GABAPENTIN
     Indication: RESTLESS LEGS SYNDROME
     Route: 048

REACTIONS (4)
  - Paraesthesia [Unknown]
  - Rhinorrhoea [Not Recovered/Not Resolved]
  - Resting tremor [Unknown]
  - Drug ineffective [Unknown]

NARRATIVE: CASE EVENT DATE: 202001
